FAERS Safety Report 4685408-1 (Version None)
Quarter: 2005Q2

REPORT INFORMATION
  Report Type: 
  Country: None (occurrence: None)
  Receive Date: 20050608
  Receipt Date: 20050531
  Transmission Date: 20051028
  Serious: Yes (Death, Life-Threatening)
  Sender: FDA-Public Use
  Company Number: FR-GLAXOSMITHKLINE-B0383372A

PATIENT
  Age: 84 Year
  Sex: Male
  Weight: 63 kg

DRUGS (12)
  1. FORTUM [Suspect]
     Dosage: 3G PER DAY
     Route: 042
     Dates: start: 20050425, end: 20050503
  2. VANCOMYCIN [Concomitant]
     Dosage: 1G PER DAY
     Route: 042
     Dates: start: 20050420, end: 20050503
  3. TRIFLUCAN [Concomitant]
     Route: 065
     Dates: end: 20050504
  4. ACTRAPID [Concomitant]
     Route: 065
  5. ADRENALINE [Concomitant]
     Route: 065
  6. MOPRAL [Concomitant]
     Route: 065
     Dates: end: 20050504
  7. NEUPOGEN [Concomitant]
     Route: 065
     Dates: end: 20050504
  8. LASILIX [Concomitant]
     Route: 065
     Dates: end: 20050504
  9. ULTIVA [Concomitant]
     Route: 065
  10. NITRODERM [Concomitant]
     Route: 065
     Dates: end: 20050504
  11. CORDARONE [Concomitant]
     Route: 065
     Dates: end: 20050504
  12. SOLUPRED [Concomitant]
     Route: 065
     Dates: end: 20050504

REACTIONS (8)
  - CLONUS [None]
  - DEPRESSED LEVEL OF CONSCIOUSNESS [None]
  - EPILEPSY [None]
  - HAEMODYNAMIC INSTABILITY [None]
  - MULTI-ORGAN FAILURE [None]
  - RENAL FAILURE [None]
  - RESPIRATORY DISORDER [None]
  - TACHYCARDIA [None]
